FAERS Safety Report 17335488 (Version 2)
Quarter: 2020Q1

REPORT INFORMATION
  Report Type: Spontaneous
  Country: US (occurrence: US)
  Receive Date: 20200128
  Receipt Date: 20200207
  Transmission Date: 20200409
  Serious: Yes (Hospitalization, Disabling)
  Sender: FDA-Public Use
  Company Number: US-TEVA-2020-US-1175262

PATIENT
  Age: 33 Year
  Sex: Female

DRUGS (2)
  1. MORPHINE [Suspect]
     Active Substance: MORPHINE
     Indication: BACK PAIN
  2. MORPHINE [Suspect]
     Active Substance: MORPHINE
     Indication: BACK PAIN
     Route: 065

REACTIONS (10)
  - Overdose [Recovering/Resolving]
  - Rhabdomyolysis [Recovering/Resolving]
  - Sensory loss [Not Recovered/Not Resolved]
  - Toxicity to various agents [Recovering/Resolving]
  - Metabolic acidosis [Recovering/Resolving]
  - Cardiovascular disorder [Recovering/Resolving]
  - Hypoperfusion [Recovering/Resolving]
  - Acute kidney injury [Recovering/Resolving]
  - Compartment syndrome [Recovering/Resolving]
  - Renal tubular necrosis [Recovering/Resolving]
